FAERS Safety Report 6699046-2 (Version None)
Quarter: 2010Q2

REPORT INFORMATION
  Report Type: 
  Country: None (occurrence: None)
  Receive Date: 20100423
  Receipt Date: 20100409
  Transmission Date: 20101027
  Serious: Yes (Hospitalization)
  Sender: FDA-Public Use
  Company Number: 010074

PATIENT
  Age: 38 Year
  Sex: Male

DRUGS (6)
  1. KEPPRA [Suspect]
     Indication: CONVULSION
     Dosage: 1 G QD ORAL
     Route: 048
     Dates: start: 20091029
  2. SULFADIAZINE [Suspect]
     Indication: TOXOPLASMOSIS
     Dosage: 4 MG ORAL
     Route: 048
     Dates: start: 20091024
  3. VALPROIC ACID [Suspect]
     Indication: CONVULSION
     Dosage: 1.5 G ORAL
     Route: 048
     Dates: start: 20091024, end: 20091118
  4. PARACETAMOL [Concomitant]
  5. PYRIMETHAMINE TAB [Concomitant]
  6. LEDERFOLIN [Concomitant]

REACTIONS (4)
  - CENTRAL NERVOUS SYSTEM LYMPHOMA [None]
  - CONVULSION [None]
  - DRUG INTERACTION [None]
  - HEPATITIS [None]
